FAERS Safety Report 7629955-9 (Version None)
Quarter: 2011Q3

REPORT INFORMATION
  Report Type: 
  Country: None (occurrence: None)
  Receive Date: 20110722
  Receipt Date: 20110720
  Transmission Date: 20111222
  Serious: Yes (Disabling)
  Sender: FDA-Public Use
  Company Number: FR-BRISTOL-MYERS SQUIBB COMPANY-15913593

PATIENT
  Age: 74 Year
  Sex: Female

DRUGS (3)
  1. ASPIRIN [Suspect]
     Route: 048
  2. HYDREA [Suspect]
     Indication: ESSENTIAL THROMBOCYTHAEMIA
     Route: 048
     Dates: end: 20071101
  3. VERCYTE [Suspect]
     Indication: ESSENTIAL THROMBOCYTHAEMIA
     Dosage: 1DF:2DF
     Route: 048
     Dates: start: 20071101

REACTIONS (3)
  - SKIN ULCER [None]
  - CONDITION AGGRAVATED [None]
  - FINGERPRINT LOSS [None]
